FAERS Safety Report 19429673 (Version 2)
Quarter: 2022Q1

REPORT INFORMATION
  Report Type: Spontaneous
  Country: US (occurrence: US)
  Receive Date: 20210617
  Receipt Date: 20220322
  Transmission Date: 20220423
  Serious: No
  Sender: FDA-Public Use
  Company Number: US-PFIZER INC-2020011778

PATIENT
  Age: 69 Year

DRUGS (1)
  1. PREMPRO [Suspect]
     Active Substance: ESTROGENS, CONJUGATED\MEDROXYPROGESTERONE ACETATE
     Dosage: UNK

REACTIONS (6)
  - Arthritis [Unknown]
  - Feeling abnormal [Unknown]
  - Hot flush [Unknown]
  - Night sweats [Unknown]
  - Headache [Unknown]
  - Dyslexia [Unknown]
